FAERS Safety Report 5584001-6 (Version None)
Quarter: 2008Q1

REPORT INFORMATION
  Report Type: 
  Country: None (occurrence: None)
  Receive Date: 20080103
  Receipt Date: 20080103
  Transmission Date: 20080703
  Serious: Yes (Hospitalization)
  Sender: FDA-Public Use
  Company Number: None

PATIENT
  Age: 25 Year
  Sex: Female

DRUGS (2)
  1. IBUPROFEN [Suspect]
     Indication: CAESAREAN SECTION
     Dosage: 800 MG Q8HRS PO
     Route: 048
  2. IBUPROFEN [Suspect]
     Indication: PROCEDURAL PAIN
     Dosage: 800 MG Q8HRS PO
     Route: 048

REACTIONS (4)
  - BLOOD POTASSIUM DECREASED [None]
  - DEHYDRATION [None]
  - INCISION SITE INFECTION [None]
  - RENAL FAILURE ACUTE [None]
